FAERS Safety Report 5923710-3 (Version None)
Quarter: 2008Q4

REPORT INFORMATION
  Report Type: 
  Country: None (occurrence: None)
  Receive Date: 20081020
  Receipt Date: 20081010
  Transmission Date: 20090506
  Serious: Yes (Other)
  Sender: FDA-Public Use
  Company Number: B0361684A

PATIENT
  Age: 39 Year
  Sex: Female

DRUGS (4)
  1. PAROXETINE HYDROCHLORIDE [Suspect]
     Route: 065
     Dates: start: 19950810
  2. ZIMOVANE [Concomitant]
     Route: 065
  3. PROZAC [Concomitant]
     Route: 065
     Dates: start: 20020618
  4. PROTHIADEN [Concomitant]
     Route: 065
     Dates: start: 20000317

REACTIONS (20)
  - AGITATION [None]
  - ASTHENIA [None]
  - BEDRIDDEN [None]
  - DEPRESSED MOOD [None]
  - DISORIENTATION [None]
  - DIZZINESS [None]
  - HEADACHE [None]
  - INCONTINENCE [None]
  - INCREASED TENDENCY TO BRUISE [None]
  - INSOMNIA [None]
  - MALAISE [None]
  - MOOD SWINGS [None]
  - NAUSEA [None]
  - NIGHTMARE [None]
  - PANIC ATTACK [None]
  - SUICIDAL IDEATION [None]
  - TEARFULNESS [None]
  - TREMOR [None]
  - VOMITING [None]
  - WITHDRAWAL SYNDROME [None]
